FAERS Safety Report 14557783 (Version 1)
Quarter: 2018Q1

REPORT INFORMATION
  Report Type: Report from Study
  Country: JP (occurrence: JP)
  Receive Date: 20180221
  Receipt Date: 20180221
  Transmission Date: 20180509
  Serious: Yes (Death, Other)
  Sender: FDA-Public Use
  Company Number: JP-INCYTE CORPORATION-2016IN003065

PATIENT

DRUGS (30)
  1. JAKAVI [Suspect]
     Active Substance: RUXOLITINIB
     Dosage: 10 MG, BID
     Route: 048
     Dates: start: 20150522, end: 20150522
  2. JAKAVI [Suspect]
     Active Substance: RUXOLITINIB
     Dosage: 10 MG, BID
     Route: 048
     Dates: start: 20150704, end: 20150717
  3. JAKAVI [Suspect]
     Active Substance: RUXOLITINIB
     Dosage: 20 MG, BID
     Route: 048
     Dates: start: 20151023, end: 20151203
  4. ACLACINON [Suspect]
     Active Substance: ACLARUBICIN HYDROCHLORIDE
     Dosage: 16 MG, QD
     Route: 065
     Dates: start: 20160427, end: 20160430
  5. VFEND [Suspect]
     Active Substance: VORICONAZOLE
     Dosage: 100 MG, QD
     Route: 048
     Dates: start: 20160622, end: 20160705
  6. HYDREA [Suspect]
     Active Substance: HYDROXYUREA
     Dosage: 2000 MG, QD
     Route: 048
     Dates: start: 20160311, end: 20160318
  7. CYLOCIDE [Suspect]
     Active Substance: CYTARABINE
     Dosage: 32 MG, QD
     Route: 065
     Dates: start: 20160630, end: 20160707
  8. ACLACINON [Suspect]
     Active Substance: ACLARUBICIN HYDROCHLORIDE
     Indication: MYELOFIBROSIS
     Dosage: 16 MG, UNK
     Route: 065
     Dates: end: 20160322
  9. JAKAVI [Suspect]
     Active Substance: RUXOLITINIB
     Indication: MYELOFIBROSIS
     Dosage: 15 MG, BID
     Route: 048
     Dates: start: 20150504, end: 20150512
  10. HYDREA [Suspect]
     Active Substance: HYDROXYUREA
     Dosage: 500 MG, QD
     Route: 048
     Dates: start: 20160227, end: 20160310
  11. HYDREA [Suspect]
     Active Substance: HYDROXYUREA
     Dosage: 1500 MG, QD
     Route: 048
     Dates: start: 20160409, end: 20160426
  12. VFEND [Suspect]
     Active Substance: VORICONAZOLE
     Dosage: 200 MG, QD
     Route: 048
     Dates: start: 20160706
  13. JAKAVI [Suspect]
     Active Substance: RUXOLITINIB
     Dosage: 15 MG, BID
     Route: 048
     Dates: start: 20150523, end: 20150703
  14. JAKAVI [Suspect]
     Active Substance: RUXOLITINIB
     Dosage: 25 MG, BID
     Route: 048
     Dates: start: 20151204
  15. HYDREA [Suspect]
     Active Substance: HYDROXYUREA
     Dosage: 500 MG, QD
     Route: 048
     Dates: start: 20151030, end: 20151228
  16. CYLOCIDE [Suspect]
     Active Substance: CYTARABINE
     Dosage: 32 MG, QD
     Route: 065
     Dates: start: 20160427, end: 20160510
  17. DAIPHEN [Concomitant]
     Active Substance: SULFAMETHOXAZOLE\TRIMETHOPRIM
     Indication: OPPORTUNISTIC INFECTION PROPHYLAXIS
     Dosage: 1 DF, UNK
     Route: 048
     Dates: start: 20160320
  18. JAKAVI [Suspect]
     Active Substance: RUXOLITINIB
     Dosage: 12.5 MG, BID
     Route: 048
     Dates: start: 20150718, end: 20151022
  19. CYLOCIDE [Suspect]
     Active Substance: CYTARABINE
     Dosage: 32 MG, QD
     Route: 065
     Dates: start: 20160518, end: 20160526
  20. ACLACINON [Suspect]
     Active Substance: ACLARUBICIN HYDROCHLORIDE
     Dosage: 16 MG, QD
     Route: 065
     Dates: start: 20160518, end: 20160521
  21. VFEND [Suspect]
     Active Substance: VORICONAZOLE
     Indication: BRONCHOPULMONARY ASPERGILLOSIS
     Dosage: 600 MG, QD
     Route: 048
     Dates: end: 20160604
  22. JAKAVI [Suspect]
     Active Substance: RUXOLITINIB
     Dosage: 5 MG, BID
     Route: 048
     Dates: start: 20150513, end: 20150521
  23. HYDREA [Suspect]
     Active Substance: HYDROXYUREA
     Indication: MYELOFIBROSIS
     Dosage: 1000 MG, QD
     Route: 048
     Dates: start: 20140609, end: 20140813
  24. HYDREA [Suspect]
     Active Substance: HYDROXYUREA
     Dosage: 1500 MG, QD
     Route: 048
     Dates: start: 20140814, end: 20150420
  25. ACLACINON [Suspect]
     Active Substance: ACLARUBICIN HYDROCHLORIDE
     Dosage: 16 MG, QD
     Route: 065
     Dates: start: 20160630, end: 20160703
  26. ISCOTIN [Concomitant]
     Active Substance: ISONIAZID
     Indication: OPPORTUNISTIC INFECTION PROPHYLAXIS
     Dosage: 300 MG, UNK
     Route: 048
     Dates: start: 20150503
  27. HYDREA [Suspect]
     Active Substance: HYDROXYUREA
     Dosage: 2000 MG, QD
     Route: 048
     Dates: start: 20150421, end: 20150502
  28. HYDREA [Suspect]
     Active Substance: HYDROXYUREA
     Dosage: 500 MG, QOD
     Route: 048
     Dates: start: 20151229, end: 20160226
  29. ACICLOVIR [Concomitant]
     Active Substance: ACYCLOVIR
     Indication: OPPORTUNISTIC INFECTION PROPHYLAXIS
     Dosage: 200 MG, UNK
     Route: 048
     Dates: start: 20150503
  30. CYLOCIDE [Suspect]
     Active Substance: CYTARABINE
     Indication: MYELOFIBROSIS
     Dosage: 32 MG, UNK
     Route: 065
     Dates: end: 20160401

REACTIONS (10)
  - Platelet count decreased [Not Recovered/Not Resolved]
  - Platelet count decreased [Recovered/Resolved]
  - Anaemia [Recovering/Resolving]
  - Gamma-glutamyltransferase increased [Not Recovered/Not Resolved]
  - Acute leukaemia [Fatal]
  - Blood alkaline phosphatase increased [Not Recovered/Not Resolved]
  - C-reactive protein increased [Not Recovered/Not Resolved]
  - Blood creatinine increased [Not Recovered/Not Resolved]
  - Bronchopulmonary aspergillosis [Not Recovered/Not Resolved]
  - Anaemia [Not Recovered/Not Resolved]

NARRATIVE: CASE EVENT DATE: 20150513
